FAERS Safety Report 9357687 (Version 1)
Quarter: 2013Q2

REPORT INFORMATION
  Report Type: Spontaneous
  Country: US (occurrence: US)
  Receive Date: 20130620
  Receipt Date: 20130620
  Transmission Date: 20140414
  Serious: Yes (Other)
  Sender: FDA-Public Use
  Company Number: US-PFIZER INC-2013183847

PATIENT
  Age: 73 Year
  Sex: Female
  Weight: 85.71 kg

DRUGS (6)
  1. LYRICA [Suspect]
     Indication: PAIN
     Dosage: 50 MG, 2X/DAY
     Route: 048
  2. LYRICA [Suspect]
     Dosage: 75 MG, 2X/DAY
     Route: 048
  3. LYRICA [Suspect]
     Dosage: 100 MG, 2X/DAY
     Route: 048
  4. LYRICA [Suspect]
     Dosage: UNK, 2X/DAY
     Route: 048
  5. DETROL LA [Concomitant]
     Dosage: UNK
  6. IBUPROFEN [Concomitant]
     Dosage: 800 MG, 2X/DAY

REACTIONS (6)
  - Arthropathy [Unknown]
  - Eye pruritus [Unknown]
  - Disturbance in attention [Unknown]
  - Feeling abnormal [Unknown]
  - Feeling hot [Unknown]
  - Eye disorder [Unknown]
